FAERS Safety Report 10026642 (Version 4)
Quarter: 2014Q2

REPORT INFORMATION
  Report Type: Spontaneous
  Country: US (occurrence: US)
  Receive Date: 20140321
  Receipt Date: 20140513
  Transmission Date: 20141212
  Serious: Yes (Other)
  Sender: FDA-Public Use
  Company Number: US-009507513-1403USA008259

PATIENT
  Age: 77 Year
  Sex: Female

DRUGS (4)
  1. FOSAMAX [Suspect]
     Indication: OSTEOPOROSIS
     Dosage: UNK
     Route: 048
     Dates: start: 1998, end: 2001
  2. FOSAMAX [Suspect]
     Dosage: UNSPECIFIED DOSE
     Route: 048
     Dates: start: 200504, end: 201009
  3. FOSAMAX [Suspect]
     Dosage: UNK
     Route: 048
     Dates: start: 201404
  4. ACTONEL [Suspect]
     Dosage: UNK

REACTIONS (6)
  - Breast cancer [Recovered/Resolved]
  - Radiotherapy [Unknown]
  - Osteopenia [Unknown]
  - Osteopenia [Unknown]
  - Chemotherapy [Unknown]
  - Drug ineffective [Unknown]
